FAERS Safety Report 8602861-9 (Version None)
Quarter: 2012Q3

REPORT INFORMATION
  Report Type: 
  Country: None (occurrence: None)
  Receive Date: 20120817
  Receipt Date: 20120813
  Transmission Date: 20120928
  Serious: Yes (Hospitalization)
  Sender: FDA-Public Use
  Company Number: US-GLAXOSMITHKLINE-A0989576A

PATIENT
  Age: 16 Year
  Sex: Male

DRUGS (1)
  1. FLOLAN [Suspect]
     Indication: PRODUCT USED FOR UNKNOWN INDICATION
     Dosage: 110NGKM CONTINUOUS
     Route: 042
     Dates: start: 20060605

REACTIONS (1)
  - PSEUDOMONAL SEPSIS [None]
